FAERS Safety Report 12573689 (Version 2)
Quarter: 2016Q3

REPORT INFORMATION
  Report Type: Spontaneous
  Country: US (occurrence: US)
  Receive Date: 20160720
  Receipt Date: 20160805
  Transmission Date: 20161109
  Serious: No
  Sender: FDA-Public Use
  Company Number: US-PFIZER INC-2016348083

PATIENT
  Age: 60 Year
  Sex: Female

DRUGS (8)
  1. PROZAC [Concomitant]
     Active Substance: FLUOXETINE HYDROCHLORIDE
     Dosage: 20 MG, AS NEEDED (PRN PROZAC: 20 MG 1 CAPSULE IN THE MORNING ONCE A DAY)
     Route: 048
  2. LOVASTATIN. [Concomitant]
     Active Substance: LOVASTATIN
     Dosage: 10 MG, AS NEEDED (PRN LOVASTATIN: 10 MG 1 TABLET WITH A MEAL ORALLY ONCE A DAY)
     Route: 048
  3. CYMBALTA [Concomitant]
     Active Substance: DULOXETINE HYDROCHLORIDE
     Dosage: 40 MG, 1X/DAY (20 MG 2 CAPSULE ONCE A DAY)
     Route: 048
  4. GABAPENTIN. [Concomitant]
     Active Substance: GABAPENTIN
     Dosage: 1200 MG, AS NEEDED (PRN GABAPENTIN: 300 MG 4 CAPSULES  THREE TIMES A DAY)
     Route: 048
  5. LISINOPRIL. [Concomitant]
     Active Substance: LISINOPRIL
     Dosage: 10 MG, 1X/DAY
     Route: 048
  6. LYRICA [Suspect]
     Active Substance: PREGABALIN
     Indication: DIABETIC NEUROPATHY
     Dosage: 200 MG, 3X/DAY
     Route: 048
     Dates: start: 201504
  7. LANTUS [Concomitant]
     Active Substance: INSULIN GLARGINE
     Dosage: 50 IU DAILY (100 UNIT/ML 50 U DAILY ONCE A DAY)
     Route: 058
  8. LYRICA [Suspect]
     Active Substance: PREGABALIN
     Indication: NEUROPATHY PERIPHERAL
     Dosage: 50 MG, UNK
     Route: 048
     Dates: start: 201504

REACTIONS (3)
  - Pain [Not Recovered/Not Resolved]
  - Proctalgia [Unknown]
  - Limb discomfort [Unknown]
